FAERS Safety Report 20836200 (Version 1)
Quarter: 2022Q2

REPORT INFORMATION
  Report Type: Report from Study
  Country: US (occurrence: US)
  Receive Date: 20220516
  Receipt Date: 20220516
  Transmission Date: 20220721
  Serious: Yes (Life-Threatening, Other)
  Sender: FDA-Public Use
  Company Number: US-BRISTOL-MYERS SQUIBB COMPANY-BMS-2022-039714

PATIENT
  Age: 78 Year
  Sex: Male
  Weight: 92.99 kg

DRUGS (13)
  1. POMALYST [Suspect]
     Active Substance: POMALIDOMIDE
     Indication: Plasma cell myeloma
     Route: 048
     Dates: start: 20220221
  2. DEXAMETHASONE [Concomitant]
     Active Substance: DEXAMETHASONE
  3. ASPIRIN [Concomitant]
     Active Substance: ASPIRIN
  4. NOVOLOG [Concomitant]
     Active Substance: INSULIN ASPART
  5. GLUCAGON [Concomitant]
     Active Substance: GLUCAGON
  6. LYRICA [Concomitant]
     Active Substance: PREGABALIN
  7. ACYCLOVIR [Concomitant]
     Active Substance: ACYCLOVIR
  8. MINERALS\VITAMINS [Concomitant]
     Active Substance: MINERALS\VITAMINS
  9. METFORMIN [Concomitant]
     Active Substance: METFORMIN HYDROCHLORIDE
  10. VITAMIN D [Concomitant]
     Active Substance: VITAMIN D NOS
  11. CALCIUM [Concomitant]
     Active Substance: CALCIUM
  12. PREDNISOLONE [Concomitant]
     Active Substance: PREDNISOLONE
  13. NEPAFENAC [Concomitant]
     Active Substance: NEPAFENAC

REACTIONS (4)
  - Dyspnoea [Recovered/Resolved]
  - Neuropathy peripheral [Not Recovered/Not Resolved]
  - Fine motor skill dysfunction [Unknown]
  - Pleural effusion [Unknown]
